FAERS Safety Report 15166783 (Version 2)
Quarter: 2019Q4

REPORT INFORMATION
  Report Type: Spontaneous
  Country: US (occurrence: US)
  Receive Date: 20180719
  Receipt Date: 20191125
  Transmission Date: 20200122
  Serious: Yes (Hospitalization, Disabling, Other)
  Sender: FDA-Public Use
  Company Number: US-OTSUKA-2018_022616

PATIENT
  Sex: Female

DRUGS (4)
  1. ABILIFY [Suspect]
     Active Substance: ARIPIPRAZOLE
     Indication: MAJOR DEPRESSION
     Dosage: 5 MG, QD
     Route: 065
     Dates: start: 2008
  2. ARIPIPRAZOLE. [Concomitant]
     Active Substance: ARIPIPRAZOLE
     Indication: PRODUCT USED FOR UNKNOWN INDICATION
     Dosage: UNK
     Route: 065
     Dates: start: 2016, end: 2016
  3. BUPRENORPHINE HYDROCHLORIDE. [Concomitant]
     Active Substance: BUPRENORPHINE HYDROCHLORIDE
     Indication: DETOXIFICATION
     Dosage: UNK
     Route: 065
  4. ABILIFY [Suspect]
     Active Substance: ARIPIPRAZOLE
     Indication: DEPRESSION
     Dosage: 15 MG, QD
     Route: 065
     Dates: end: 2016

REACTIONS (20)
  - Psychotic disorder [Unknown]
  - Intentional self-injury [Unknown]
  - Gambling disorder [Recovered/Resolved]
  - Disability [Unknown]
  - Anhedonia [Unknown]
  - Cubital tunnel syndrome [Unknown]
  - Anxiety [Unknown]
  - Depression [Unknown]
  - Loss of employment [Unknown]
  - Suicidal ideation [Recovered/Resolved]
  - Theft [Unknown]
  - Suicide attempt [Recovered/Resolved]
  - Economic problem [Unknown]
  - Carpal tunnel syndrome [Unknown]
  - Adverse event [Unknown]
  - Compulsive shopping [Recovered/Resolved]
  - Condition aggravated [Unknown]
  - Emotional distress [Unknown]
  - Pain [Unknown]
  - Shoplifting [Unknown]

NARRATIVE: CASE EVENT DATE: 2014
